FAERS Safety Report 24833049 (Version 1)
Quarter: 2025Q1

REPORT INFORMATION
  Report Type: Spontaneous
  Country: TR (occurrence: TR)
  Receive Date: 20250111
  Receipt Date: 20250111
  Transmission Date: 20250408
  Serious: Yes (Hospitalization)
  Sender: AMGEN
  Company Number: TR-AMGEN-TURSP2025001632

PATIENT
  Age: 66 Year
  Sex: Male
  Weight: 72 kg

DRUGS (4)
  1. LUMAKRAS [Suspect]
     Active Substance: SOTORASIB
     Indication: Lung cancer metastatic
     Route: 048
     Dates: start: 20241031, end: 20241226
  2. LUMAKRAS [Suspect]
     Active Substance: SOTORASIB
     Route: 048
  3. Abound [Concomitant]
     Indication: Malnutrition
     Dates: start: 202411
  4. JANUMET [Concomitant]
     Active Substance: METFORMIN HYDROCHLORIDE\SITAGLIPTIN PHOSPHATE
     Indication: Diabetes mellitus
     Dates: start: 2022

REACTIONS (1)
  - Cerebral infarction [Not Recovered/Not Resolved]

NARRATIVE: CASE EVENT DATE: 20241226
